FAERS Safety Report 5751092-9 (Version None)
Quarter: 2008Q2

REPORT INFORMATION
  Report Type: 
  Country: None (occurrence: None)
  Receive Date: 20080528
  Receipt Date: 20080523
  Transmission Date: 20081010
  Serious: Yes (Death)
  Sender: FDA-Public Use
  Company Number: CH-SANOFI-SYNTHELABO-F01200800878

PATIENT
  Sex: Female

DRUGS (7)
  1. HYDROCHLOROTHIAZIDE [Concomitant]
     Route: 048
     Dates: start: 20010101, end: 20080521
  2. CANDESARTAN [Concomitant]
     Route: 048
     Dates: start: 20010101, end: 20080521
  3. INSULIN [Concomitant]
     Dosage: 60-80 UNITS
     Route: 058
     Dates: start: 20010101, end: 20080521
  4. MORPHINE [Concomitant]
     Route: 048
     Dates: start: 20080423, end: 20080521
  5. GEMCITABINE [Suspect]
     Dosage: D1 AND D8, Q3W
     Route: 041
  6. ELOXATIN [Suspect]
     Indication: ADENOCARCINOMA PANCREAS
     Route: 041
     Dates: start: 20080503, end: 20080503
  7. XELODA [Suspect]
     Dosage: BID, DAYS 1-14, Q3W
     Route: 048
     Dates: start: 20080503

REACTIONS (1)
  - ASPIRATION [None]
